FAERS Safety Report 5612247-7 (Version None)
Quarter: 2008Q1

REPORT INFORMATION
  Report Type: 
  Country: None (occurrence: None)
  Receive Date: 20080131
  Receipt Date: 20080131
  Transmission Date: 20080703
  Serious: Yes (Hospitalization)
  Sender: FDA-Public Use
  Company Number: None

PATIENT
  Age: 77 Year
  Sex: Male

DRUGS (2)
  1. VANCOMYCIN [Suspect]
     Indication: PROPHYLAXIS
     Dosage: 1 GM Q12H IV
     Route: 042
     Dates: start: 20071119, end: 20071120
  2. VANCOMYCIN [Suspect]
     Indication: SURGERY
     Dosage: 1 GM Q12H IV
     Route: 042
     Dates: start: 20071119, end: 20071120

REACTIONS (1)
  - IDIOPATHIC THROMBOCYTOPENIC PURPURA [None]
